FAERS Safety Report 16138183 (Version 1)
Quarter: 2019Q1

REPORT INFORMATION
  Report Type: Spontaneous
  Country: FR (occurrence: FR)
  Receive Date: 20190330
  Receipt Date: 20190330
  Transmission Date: 20190418
  Serious: Yes (Other)
  Sender: FDA-Public Use
  Company Number: FR-ACCORD-116651

PATIENT
  Age: 44 Year
  Sex: Male
  Weight: 60 kg

DRUGS (2)
  1. FLUOROURACILE ACCORD [Suspect]
     Active Substance: FLUOROURACIL
     Indication: ADRENOCORTICAL CARCINOMA
     Dosage: 688 MG(BOLUS)+4128MG
     Route: 042
     Dates: start: 20181001, end: 20181001
  2. OXALIPLATINE ACCORD [Suspect]
     Active Substance: OXALIPLATIN
     Indication: ADRENOCORTICAL CARCINOMA
     Route: 042
     Dates: start: 20181001, end: 20181001

REACTIONS (2)
  - Electrocardiogram repolarisation abnormality [Recovering/Resolving]
  - Off label use [Unknown]

NARRATIVE: CASE EVENT DATE: 20181016
